FAERS Safety Report 15985824 (Version 1)
Quarter: 2019Q1

REPORT INFORMATION
  Report Type: Spontaneous
  Country: US (occurrence: US)
  Receive Date: 20190220
  Receipt Date: 20190220
  Transmission Date: 20190418
  Serious: Yes (Other)
  Sender: FDA-Public Use
  Company Number: None

PATIENT
  Age: 62 Year
  Sex: Female
  Weight: 104.85 kg

DRUGS (1)
  1. CLINDAMYCIN 300MG [Suspect]
     Active Substance: CLINDAMYCIN PHOSPHATE
     Indication: INFECTION
     Dosage: ?          QUANTITY:1 CAPSULE(S);?
     Route: 048
     Dates: start: 20190214, end: 20190215

REACTIONS (9)
  - Oral discomfort [None]
  - Nausea [None]
  - Dizziness [None]
  - Skin exfoliation [None]
  - Syncope [None]
  - Erythema [None]
  - Peripheral swelling [None]
  - Pruritus generalised [None]
  - Abdominal pain upper [None]

NARRATIVE: CASE EVENT DATE: 20190215
